FAERS Safety Report 4394241-X (Version None)
Quarter: 2004Q3

REPORT INFORMATION
  Report Type: 
  Country: None (occurrence: None)
  Receive Date: 20040707
  Receipt Date: 20040707
  Transmission Date: 20050211
  Serious: Yes (Death)
  Sender: FDA-Public Use
  Company Number: None

PATIENT
  Sex: Male
  Weight: 63.5036 kg

DRUGS (1)
  1. SULFASALAZINE [Suspect]
     Indication: ARTHRITIS
     Dates: start: 19980201, end: 19981201

REACTIONS (1)
  - APLASTIC ANAEMIA [None]
